FAERS Safety Report 9889113 (Version 1)
Quarter: 2014Q1

REPORT INFORMATION
  Report Type: Spontaneous
  Country: US (occurrence: None)
  Receive Date: 20140207
  Receipt Date: 20140207
  Transmission Date: 20141002
  Serious: Yes (Other)
  Sender: FDA-Public Use
  Company Number: 20140039

PATIENT
  Age: 24 Year
  Sex: Female

DRUGS (1)
  1. DEXAMETHASONE SODIUM PHOSPHATE [Suspect]
     Indication: ADRENOGENITAL SYNDROME
     Dosage: 0.25 MG EVERY OTHER

REACTIONS (2)
  - Non-alcoholic steatohepatitis [None]
  - Fatty liver alcoholic [None]
